FAERS Safety Report 14411308 (Version 2)
Quarter: 2018Q1

REPORT INFORMATION
  Report Type: Spontaneous
  Country: US (occurrence: US)
  Receive Date: 20180119
  Receipt Date: 20180222
  Transmission Date: 20180509
  Serious: Yes (Other)
  Sender: FDA-Public Use
  Company Number: US-ASTELLAS-2018US002248

PATIENT
  Age: 78 Year
  Sex: Male

DRUGS (3)
  1. XTANDI [Suspect]
     Active Substance: ENZALUTAMIDE
     Indication: PROSTATE CANCER METASTATIC
     Route: 065
  2. XTANDI [Suspect]
     Active Substance: ENZALUTAMIDE
     Route: 065
  3. LUPRON [Concomitant]
     Active Substance: LEUPROLIDE ACETATE
     Indication: PROSTATE CANCER METASTATIC
     Dosage: UNK UNK, UNKNOWN FREQ.
     Route: 065

REACTIONS (11)
  - Fatigue [Unknown]
  - Hot flush [Unknown]
  - Intentional overdose [Unknown]
  - Large intestinal haemorrhage [Unknown]
  - Malignant neoplasm progression [Unknown]
  - Upper respiratory tract infection [Unknown]
  - Fall [Unknown]
  - Nasopharyngitis [Unknown]
  - Arthralgia [Unknown]
  - Erectile dysfunction [Unknown]
  - Back pain [Unknown]
